FAERS Safety Report 12219226 (Version 1)
Quarter: 2016Q1

REPORT INFORMATION
  Report Type: Spontaneous
  Country: US (occurrence: US)
  Receive Date: 20160329
  Receipt Date: 20160329
  Transmission Date: 20160526
  Serious: No
  Sender: FDA-Public Use
  Company Number: US-CTI_01789_2015

PATIENT
  Sex: Male

DRUGS (1)
  1. CARDENE I.V. [Suspect]
     Active Substance: NICARDIPINE HYDROCHLORIDE
     Indication: PRODUCT USED FOR UNKNOWN INDICATION
     Dosage: DF
     Route: 042

REACTIONS (3)
  - Infusion site swelling [Unknown]
  - Extravasation [Unknown]
  - Infusion site erythema [Unknown]
